FAERS Safety Report 8032500 (Version 2)
Quarter: 2013Q2

REPORT INFORMATION
  Report Type: Spontaneous
  Country: FR (occurrence: FR)
  Receive Date: 20110713
  Receipt Date: 20130515
  Transmission Date: 20140414
  Serious: Yes (Life-Threatening, Hospitalization, Other)
  Sender: FDA-Public Use
  Company Number: FR-PFIZER INC-2011150703

PATIENT
  Age: 38 Year
  Sex: Male

DRUGS (4)
  1. XANAX [Suspect]
     Dosage: 0.5 MG, UNK
     Route: 048
     Dates: start: 20110516, end: 20110519
  2. AVLOCARDYL [Suspect]
     Dosage: 40 MG, UNK
     Route: 048
     Dates: start: 201105
  3. SEROPLEX [Suspect]
     Dosage: 20 MG, UNK
     Route: 048
     Dates: start: 201009, end: 20110519
  4. NORSET [Suspect]
     Dosage: 15 MG, UNK
     Route: 048
     Dates: start: 201010, end: 20110519

REACTIONS (4)
  - Hepatitis acute [Recovering/Resolving]
  - Reye^s syndrome [Unknown]
  - Toxicity to various agents [Recovering/Resolving]
  - Inflammation [Unknown]
